FAERS Safety Report 5393967-9 (Version None)
Quarter: 2007Q3

REPORT INFORMATION
  Report Type: 
  Country: None (occurrence: None)
  Receive Date: 20070723
  Receipt Date: 20061204
  Transmission Date: 20080115
  Serious: No
  Sender: FDA-Public Use
  Company Number: A0630501A

PATIENT
  Age: 61 Year
  Sex: Female

DRUGS (12)
  1. AVANDIA [Suspect]
     Dosage: 4MG PER DAY
     Route: 048
     Dates: start: 20060901
  2. GLUCOVANCE [Concomitant]
  3. BUMEX [Concomitant]
  4. CRESTOR [Concomitant]
  5. POTASSIUM CHLORIDE [Concomitant]
  6. VASOTEC [Concomitant]
  7. PLAVIX [Concomitant]
  8. ZANTAC 150 [Concomitant]
  9. NEURONTIN [Concomitant]
  10. ASCORBIC ACID [Concomitant]
  11. ADVIL LIQUI-GELS [Concomitant]
  12. ROBAXIN [Concomitant]

REACTIONS (1)
  - DRUG INEFFECTIVE [None]
